FAERS Safety Report 11871310 (Version 1)
Quarter: 2015Q4

REPORT INFORMATION
  Report Type: Spontaneous
  Country: CZ (occurrence: CZ)
  Receive Date: 20151228
  Receipt Date: 20151228
  Transmission Date: 20160305
  Serious: Yes (Hospitalization, Other)
  Sender: FDA-Public Use
  Company Number: CZ-TEVA-619087ACC

PATIENT
  Sex: Female
  Weight: 61 kg

DRUGS (3)
  1. HERPESIN 250 [Suspect]
     Active Substance: ACYCLOVIR
     Indication: OPHTHALMIC HERPES ZOSTER
     Dosage: 750 MILLIGRAM DAILY;
     Route: 042
     Dates: start: 20151117, end: 20151124
  2. NEURONTIN [Concomitant]
     Active Substance: GABAPENTIN
     Indication: NEURALGIA
     Route: 048
     Dates: start: 20151117, end: 20151127
  3. ASENTRA 50 [Concomitant]
     Indication: DEPRESSION
     Route: 048
     Dates: start: 20151117, end: 20151127

REACTIONS (3)
  - Dysarthria [Unknown]
  - Vertigo [Unknown]
  - Diplopia [Unknown]

NARRATIVE: CASE EVENT DATE: 20151124
